FAERS Safety Report 6020695-9 (Version None)
Quarter: 2008Q4

REPORT INFORMATION
  Report Type: 
  Country: None (occurrence: None)
  Receive Date: 20081223
  Receipt Date: 20081223
  Transmission Date: 20090506
  Serious: Yes (Other)
  Sender: FDA-Public Use
  Company Number: None

PATIENT
  Age: 59 Year
  Sex: Male
  Weight: 73.4827 kg

DRUGS (2)
  1. BUDEPRION SR 150 MG. [Suspect]
     Indication: DEPRESSION
     Dosage: 150 MG EVERY 12 HRS P.O.
     Route: 048
     Dates: start: 20040101, end: 20081201
  2. ALPRAZOLAM [Concomitant]

REACTIONS (7)
  - ANXIETY [None]
  - DYSPHEMIA [None]
  - IMPAIRED WORK ABILITY [None]
  - INSOMNIA [None]
  - PALPITATIONS [None]
  - PRODUCT QUALITY ISSUE [None]
  - TREMOR [None]
